FAERS Safety Report 4979098-8 (Version None)
Quarter: 2006Q2

REPORT INFORMATION
  Report Type: 
  Country: None (occurrence: None)
  Receive Date: 20060418
  Receipt Date: 20060411
  Transmission Date: 20061013
  Serious: Yes (Other)
  Sender: FDA-Public Use
  Company Number: 2006-04-0765

PATIENT
  Age: 32 Year
  Sex: Male

DRUGS (1)
  1. CLARITIN [Suspect]
     Dosage: ORAL
     Route: 048

REACTIONS (1)
  - GRAND MAL CONVULSION [None]
